FAERS Safety Report 9306353 (Version 2)
Quarter: 2013Q2

REPORT INFORMATION
  Report Type: Report from Study
  Country: BE (occurrence: BE)
  Receive Date: 20130523
  Receipt Date: 20130529
  Transmission Date: 20140414
  Serious: Yes (Other)
  Sender: FDA-Public Use
  Company Number: BE-BAYER-2013-061856

PATIENT
  Sex: Female

DRUGS (6)
  1. NEXAVAR [Suspect]
     Indication: RENAL CELL CARCINOMA
     Dosage: 400 MG/DAY
     Dates: start: 2011, end: 20130514
  2. LOORTAN [Concomitant]
     Dosage: 100 MG, OM
  3. MOTENS [Concomitant]
     Dosage: 4 MG, OM
  4. OMEPRAZOLE [Concomitant]
     Dosage: 40 MG, OM
  5. METFORMAX [Concomitant]
     Dosage: 850 MG, BID
  6. ZOMETA [Concomitant]
     Dosage: 1 EVERY FOUR WEEKS

REACTIONS (6)
  - Sepsis [None]
  - Renal cell carcinoma [None]
  - Metastases to neck [None]
  - Metastases to lung [None]
  - Metastases to pancreas [None]
  - Biliary colic [None]
